FAERS Safety Report 13067942 (Version 2)
Quarter: 2017Q1

REPORT INFORMATION
  Report Type: Report from Study
  Country: DE (occurrence: DE)
  Receive Date: 20161228
  Receipt Date: 20170222
  Transmission Date: 20170428
  Serious: Yes (Hospitalization, Other)
  Sender: FDA-Public Use
  Company Number: PHHY2016DE177995

PATIENT
  Sex: Female
  Weight: 83 kg

DRUGS (9)
  1. RAMIPRIL COMP [Concomitant]
     Active Substance: HYDROCHLOROTHIAZIDE\RAMIPRIL
     Indication: HYPERTENSION
     Dosage: 0.5 DF (5/25), QD (0.5-0-0)
     Route: 048
  2. AMLODIPIN [Concomitant]
     Active Substance: AMLODIPINE BESYLATE
     Indication: PRODUCT USED FOR UNKNOWN INDICATION
     Dosage: 1 DF, QD (0-0-1)
     Route: 065
  3. COSENTYX [Suspect]
     Active Substance: SECUKINUMAB
     Indication: PSORIASIS
     Dosage: 300 MG, QMO (EVERY 4 WEEKS)
     Route: 058
     Dates: start: 20150521
  4. NOVALGIN [Suspect]
     Active Substance: METAMIZOLE SODIUM
     Indication: PRODUCT USED FOR UNKNOWN INDICATION
     Dosage: 1-1-1-1, PRN
     Route: 065
  5. BIFITERAL [Concomitant]
     Active Substance: LACTULOSE
     Indication: PRODUCT USED FOR UNKNOWN INDICATION
     Dosage: 1 DF, PRN (1-0-0)
     Route: 065
  6. PANTOPRAZOLE [Concomitant]
     Active Substance: PANTOPRAZOLE SODIUM
     Indication: REFLUX GASTRITIS
     Dosage: 40 MG, QD
     Route: 048
  7. PANTOZOL [Concomitant]
     Active Substance: PANTOPRAZOLE SODIUM
     Indication: PRODUCT USED FOR UNKNOWN INDICATION
     Dosage: 1 DF, QD (0-0-1)
     Route: 065
  8. PROCORALAN [Concomitant]
     Active Substance: IVABRADINE
     Indication: HYPERTENSION
     Dosage: 1 DF, QD (1-0-0)
     Route: 048
  9. ALLOPURINOL. [Concomitant]
     Active Substance: ALLOPURINOL
     Indication: PRODUCT USED FOR UNKNOWN INDICATION
     Dosage: 1 DF, QD (0-0-1)
     Route: 065

REACTIONS (15)
  - Pneumonia [Recovering/Resolving]
  - Hypertension [Recovering/Resolving]
  - Abdominal hernia [Recovered/Resolved]
  - Abdominal discomfort [Recovering/Resolving]
  - Drug hypersensitivity [Recovering/Resolving]
  - Abdominal wall abscess [Recovered/Resolved]
  - Abdominal distension [Recovering/Resolving]
  - Abdominal pain [Recovering/Resolving]
  - Impaired healing [Recovering/Resolving]
  - Haematoma [Recovering/Resolving]
  - Incisional hernia [Recovering/Resolving]
  - Abdominal hernia perforation [Recovering/Resolving]
  - Staphylococcus test positive [Recovering/Resolving]
  - Abdominal adhesions [Recovering/Resolving]
  - Intra-abdominal fluid collection [Recovering/Resolving]

NARRATIVE: CASE EVENT DATE: 20160928
